FAERS Safety Report 8122595-7 (Version None)
Quarter: 2012Q1

REPORT INFORMATION
  Report Type: 
  Country: None (occurrence: None)
  Receive Date: 20120208
  Receipt Date: 20120130
  Transmission Date: 20120608
  Serious: Yes (Hospitalization)
  Sender: FDA-Public Use
  Company Number: FR-MERCK-1202USA00112

PATIENT
  Age: 70 Year
  Sex: Male

DRUGS (7)
  1. ZETIA [Suspect]
     Route: 048
     Dates: start: 19950101
  2. ANAFRANIL [Suspect]
     Route: 048
     Dates: start: 19950101
  3. XANAX [Suspect]
     Route: 048
     Dates: start: 19950101
  4. FURADANTIN [Suspect]
     Route: 048
     Dates: start: 20101101, end: 20101201
  5. LERCANIDIPINE [Suspect]
     Route: 048
     Dates: start: 20000101
  6. IRBESARTAN + HYDROCHLOROTHIAZIDE [Suspect]
     Route: 048
     Dates: start: 20000101, end: 20110215
  7. INDAPAMIDE [Concomitant]
     Route: 065

REACTIONS (1)
  - COLITIS MICROSCOPIC [None]
